FAERS Safety Report 4733037-3 (Version None)
Quarter: 2005Q3

REPORT INFORMATION
  Report Type: 
  Country: None (occurrence: None)
  Receive Date: 20050725
  Receipt Date: 20040720
  Transmission Date: 20060218
  Serious: Yes (Death, Other)
  Sender: FDA-Public Use
  Company Number: USA-2004-0016109

PATIENT
  Age: 53 Year
  Sex: Male
  Weight: 89.8 kg

DRUGS (13)
  1. MORPHINE SULFATE [Suspect]
  2. ACETAMINOPHEN [Suspect]
  3. CAFFEINE (CAFFEINE) [Suspect]
  4. HYDROCODONE BITARTRATE [Suspect]
  5. MIRTAZAPINE [Suspect]
  6. NICOTINE [Suspect]
  7. CYCLOBENZAPRINE HYDROCHLORIDE [Suspect]
  8. DIAZEPAM [Suspect]
  9. GABAPENTIN [Suspect]
  10. OXAZEPAM [Suspect]
  11. TEMAZEPAM [Suspect]
  12. PHENYTOIN [Suspect]
  13. ETHANOL (ETHANOL) [Suspect]

REACTIONS (3)
  - ACCIDENTAL OVERDOSE [None]
  - CONVULSION [None]
  - MULTIPLE DRUG OVERDOSE [None]
